FAERS Safety Report 17339408 (Version 1)
Quarter: 2020Q1

REPORT INFORMATION
  Report Type: Spontaneous
  Country: US (occurrence: US)
  Receive Date: 20200114
  Receipt Date: 20200114
  Transmission Date: 20200409
  Serious: No
  Sender: FDA-Public Use
  Company Number: None

PATIENT
  Age: 66 Year
  Sex: Male

DRUGS (1)
  1. TALTZ [Suspect]
     Active Substance: IXEKIZUMAB
     Indication: MYOCARDITIS
     Dosage: ?          OTHER DOSE:80;OTHER FREQUENCY:UNKNOWN;?
     Route: 057
     Dates: start: 201910, end: 201911

REACTIONS (1)
  - Infection [None]

NARRATIVE: CASE EVENT DATE: 20200114
